FAERS Safety Report 16311395 (Version 3)
Quarter: 2019Q3

REPORT INFORMATION
  Report Type: Spontaneous
  Country: US (occurrence: US)
  Receive Date: 20190514
  Receipt Date: 20190716
  Transmission Date: 20191004
  Serious: No
  Sender: FDA-Public Use
  Company Number: US-PFIZER INC-2019201736

PATIENT
  Age: 65 Year
  Sex: Male

DRUGS (38)
  1. COREG CR [Concomitant]
     Active Substance: CARVEDILOL PHOSPHATE
     Dosage: 40 MG, DAILY
     Route: 048
     Dates: start: 20190603
  2. VALIUM [Concomitant]
     Active Substance: DIAZEPAM
     Indication: ANXIETY
     Dosage: 5 MG, AS NEEDED
     Route: 048
     Dates: start: 20190603
  3. FLONASE [Concomitant]
     Active Substance: FLUTICASONE PROPIONATE
     Dosage: UNK UNK, 2X/DAY
     Route: 045
     Dates: start: 20190423
  4. HUMALOG [Concomitant]
     Active Substance: INSULIN LISPRO
     Dosage: UNK UNK, 3X/DAY
     Dates: start: 20190529
  5. NIZORAL [Concomitant]
     Active Substance: KETOCONAZOLE
     Indication: PRURITUS
     Dosage: UNK UNK, AS NEEDED
     Dates: start: 20190614
  6. GLUCOPHAGE [Concomitant]
     Active Substance: METFORMIN HYDROCHLORIDE
     Dosage: 500 MG, 2X/DAY
  7. PROTONIX [Concomitant]
     Active Substance: PANTOPRAZOLE SODIUM
     Dosage: 40 MG, AS NEEDED
     Route: 048
     Dates: start: 20190206
  8. SONATA [ZALEPLON] [Concomitant]
     Dosage: 10 MG, 1X/DAY, (NIGHTLY)
     Route: 048
     Dates: start: 20190613
  9. BENTYL [Concomitant]
     Active Substance: DICYCLOMINE HYDROCHLORIDE
     Indication: ABDOMINAL DISCOMFORT
     Dosage: UNK UNK, AS NEEDED, (ONE- HALF TO ONE)
     Route: 048
     Dates: start: 20190313
  10. GLUCAGON. [Concomitant]
     Active Substance: GLUCAGON
     Indication: HYPOGLYCAEMIA
     Dosage: 1 MG, AS NEEDED
     Route: 058
     Dates: start: 20180807
  11. GLUCOPHAGE [Concomitant]
     Active Substance: METFORMIN HYDROCHLORIDE
     Dosage: 500 MG, 1X/DAY, (2 WEEKS)
     Dates: start: 20190515
  12. SIMETHICONE (DIMETHICONE) [Concomitant]
     Active Substance: DIMETHICONE
     Indication: ABDOMINAL PAIN
     Dosage: 125 MG, AS NEEDED
     Dates: start: 20180817
  13. ZANAFLEX [Concomitant]
     Active Substance: TIZANIDINE HYDROCHLORIDE
     Dosage: 2 MG, AS NEEDED
     Dates: start: 20190226
  14. VENTOLIN HFA [Concomitant]
     Active Substance: ALBUTEROL SULFATE
     Dosage: UNK, AS NEEDED, (90 MCG/PUFF INHALER)
     Route: 055
     Dates: start: 20190603
  15. VITAMIN D3 [Concomitant]
     Active Substance: CHOLECALCIFEROL
     Dosage: 2000 IU, DAILY
     Route: 048
     Dates: start: 20181010
  16. DESOWEN [Concomitant]
     Active Substance: DESONIDE
     Indication: EXFOLIATIVE RASH
     Dosage: UNK UNK, AS NEEDED
     Dates: start: 20180212
  17. LIDEX [Concomitant]
     Active Substance: FLUOCINONIDE
     Indication: EXFOLIATIVE RASH
     Dosage: UNK UNK, AS NEEDED
     Dates: start: 20190314
  18. ZESTRIL [Concomitant]
     Active Substance: LISINOPRIL
     Dosage: 5 MG, DAILY
     Route: 048
     Dates: start: 20190308
  19. NAPROSYN [Concomitant]
     Active Substance: NAPROXEN
     Indication: PAIN
     Dosage: 500 MG, AS NEEDED
     Route: 048
     Dates: start: 20190423
  20. LYRICA [Concomitant]
     Active Substance: PREGABALIN
     Dosage: 100 MG, 3X/DAY
     Route: 048
     Dates: start: 20190517
  21. NEOMYCIN SULFATE. [Suspect]
     Active Substance: NEOMYCIN SULFATE
     Indication: WOUND
     Dosage: UNK
     Route: 061
     Dates: start: 20181016, end: 20181030
  22. CREON [Concomitant]
     Active Substance: PANCRELIPASE AMYLASE\PANCRELIPASE LIPASE\PANCRELIPASE PROTEASE
     Dosage: 5 DF, 3X/DAY
     Route: 048
     Dates: start: 20181219
  23. NEUPRO [Concomitant]
     Active Substance: ROTIGOTINE
     Dosage: UNK UNK, DAILY
     Route: 061
     Dates: start: 20190617
  24. VOLTAREN [DICLOFENAC] [Concomitant]
     Active Substance: DICLOFENAC SODIUM
     Dosage: 4 G, 4X/DAY
     Route: 061
     Dates: start: 20180511
  25. MAXALT [Concomitant]
     Active Substance: RIZATRIPTAN BENZOATE
     Indication: MIGRAINE
     Dosage: UNK
     Route: 048
     Dates: start: 20190617
  26. ALBUTEROL [SALBUTAMOL] [Concomitant]
     Active Substance: ALBUTEROL
     Dosage: UNK UNK, AS NEEDED
     Route: 055
     Dates: start: 20190423
  27. REGLAN [Concomitant]
     Active Substance: METOCLOPRAMIDE HYDROCHLORIDE
     Dosage: 5 MG, 3X/DAY, (BEFORE MEALS)
     Route: 048
     Dates: start: 20190114
  28. BACTROBAN [Concomitant]
     Active Substance: MUPIROCIN\MUPIROCIN CALCIUM
     Indication: PIGMENTATION DISORDER
     Dosage: UNK UNK, 2X/DAY
     Dates: start: 20190424
  29. DIPROLENE AF [Concomitant]
     Active Substance: BETAMETHASONE DIPROPIONATE
     Indication: PSORIASIS
     Dosage: UNK UNK, AS NEEDED
     Dates: start: 20180306
  30. LUMIGAN [Concomitant]
     Active Substance: BIMATOPROST
     Dosage: 2 GTT, 1X/DAY
     Dates: start: 20190610
  31. NIZORAL [Concomitant]
     Active Substance: KETOCONAZOLE
     Indication: SKIN EXFOLIATION
  32. ZOFRAN [Concomitant]
     Active Substance: ONDANSETRON HYDROCHLORIDE
     Indication: NAUSEA
     Dosage: UNK UNK, AS NEEDED, (DISSOLVE ONE TO TWO TABLETS)
     Route: 048
     Dates: start: 20180831
  33. CRESTOR [Concomitant]
     Active Substance: ROSUVASTATIN CALCIUM
     Dosage: 20 MG, 1X/DAY
     Route: 048
     Dates: start: 20190121
  34. EFFEXOR [Concomitant]
     Active Substance: VENLAFAXINE HYDROCHLORIDE
     Dosage: 100 MG, 2X/DAY
     Route: 048
     Dates: start: 20190206
  35. DEXTROSE. [Concomitant]
     Active Substance: DEXTROSE
     Indication: DIABETES MELLITUS
     Dosage: 15 G, AS NEEDED
     Route: 048
  36. ADVAIR HFA [Concomitant]
     Active Substance: FLUTICASONE PROPIONATE\SALMETEROL XINAFOATE
     Dosage: UNK UNK, 2X/DAY,(1 PUFF)
     Route: 055
     Dates: start: 20190604
  37. PRINIVIL [Concomitant]
     Active Substance: LISINOPRIL
     Dosage: 5 MG, DAILY, (0.5 TABLETS)
     Route: 048
     Dates: start: 20190308
  38. CLARITIN [Concomitant]
     Active Substance: LORATADINE
     Dosage: 10 MG, DAILY
     Route: 048
     Dates: start: 20170512

REACTIONS (2)
  - Drug eruption [Unknown]
  - Dermatitis [Recovered/Resolved]

NARRATIVE: CASE EVENT DATE: 20181022
